FAERS Safety Report 19332395 (Version 1)
Quarter: 2021Q2

REPORT INFORMATION
  Report Type: Spontaneous
  Country: JP (occurrence: JP)
  Receive Date: 20210529
  Receipt Date: 20210529
  Transmission Date: 20210717
  Serious: Yes (Hospitalization)
  Sender: FDA-Public Use
  Company Number: JP-PBT-000493

PATIENT
  Age: 85 Year

DRUGS (3)
  1. AZACITIDINE. [Suspect]
     Active Substance: AZACITIDINE
     Indication: CHLOROMA
     Dosage: 3 CYCLES
     Route: 065
  2. TACROLIMUS. [Suspect]
     Active Substance: TACROLIMUS
     Indication: NEOPLASM SKIN
     Route: 061
  3. AZACITIDINE. [Suspect]
     Active Substance: AZACITIDINE
     Indication: MYELODYSPLASTIC SYNDROME
     Dosage: FOR 7 DAYS EVERY MONTH
     Route: 065

REACTIONS (4)
  - Drug ineffective for unapproved indication [Unknown]
  - Malaise [Recovered/Resolved]
  - Septic shock [Recovered/Resolved]
  - Constipation [Recovered/Resolved]
